FAERS Safety Report 25629931 (Version 1)
Quarter: 2025Q3

REPORT INFORMATION
  Report Type: Report from Study
  Country: US (occurrence: US)
  Receive Date: 20250731
  Receipt Date: 20250731
  Transmission Date: 20251020
  Serious: Yes (Other)
  Sender: TAKEDA
  Company Number: US-TAKEDA-2025TUS067519

PATIENT
  Sex: Female

DRUGS (1)
  1. LANADELUMAB [Suspect]
     Active Substance: LANADELUMAB
     Indication: Hereditary angioedema

REACTIONS (4)
  - Near death experience [Unknown]
  - Paraesthesia [Unknown]
  - Fatigue [Unknown]
  - Hereditary angioedema [Not Recovered/Not Resolved]
